FAERS Safety Report 5857182-4 (Version None)
Quarter: 2008Q3

REPORT INFORMATION
  Report Type: 
  Country: None (occurrence: None)
  Receive Date: 20080825
  Receipt Date: 20080821
  Transmission Date: 20090109
  Serious: Yes (Death, Hospitalization)
  Sender: FDA-Public Use
  Company Number: PHHY2008BR18824

PATIENT
  Age: 90 Year
  Sex: Female

DRUGS (1)
  1. EXELON [Suspect]
     Indication: SENILE DEMENTIA
     Dosage: 1.5 MG,  1 CAPSULE DAILY
     Route: 048

REACTIONS (3)
  - ASTHENIA [None]
  - DYSPHAGIA [None]
  - PNEUMONIA [None]
